FAERS Safety Report 5802071-4 (Version None)
Quarter: 2008Q3

REPORT INFORMATION
  Report Type: 
  Country: None (occurrence: None)
  Receive Date: 20080707
  Receipt Date: 20080625
  Transmission Date: 20090109
  Serious: Yes (Hospitalization)
  Sender: FDA-Public Use
  Company Number: PHHY2008US12211

PATIENT
  Sex: Male
  Weight: 54.8 kg

DRUGS (15)
  1. ERL 080A ERL+TAB [Suspect]
     Indication: RENAL TRANSPLANT
     Dosage: 360 MG, BID
     Route: 048
     Dates: start: 20080427
  2. ERL 080A ERL+TAB [Suspect]
     Dosage: 180 MG, BID
  3. ERL 080A ERL+TAB [Suspect]
     Dosage: 360 MG, BID
  4. PROGRAF [Concomitant]
     Indication: IMMUNOSUPPRESSION
     Dosage: 4 MG, BID
     Dates: start: 20080427
  5. TOPROL-XL [Concomitant]
     Indication: HYPERTENSION
     Dosage: 100 MG, BID
  6. CLONIDINE [Concomitant]
     Indication: HYPERTENSION
     Dosage: 0.3 MG, BID
  7. BACTRIUM [Concomitant]
     Indication: PROPHYLAXIS
     Dosage: UNK
     Dates: start: 20080427
  8. VALCYTE [Concomitant]
     Indication: PROPHYLAXIS
     Dosage: UNK
     Dates: start: 20080427
  9. NEXIUM [Concomitant]
     Dosage: 40 MG, QD
     Dates: start: 20080429
  10. NIFEDIPINE [Concomitant]
     Indication: HYPERTENSION
     Dosage: 60 MG, QD
     Dates: start: 20080429
  11. EPIVIR [Concomitant]
     Indication: PROPHYLAXIS
     Dosage: 100 MG, QD
     Dates: start: 20080429
  12. REGLAN [Concomitant]
     Indication: IMPAIRED GASTRIC EMPTYING
     Dosage: 10 MG, TID
     Dates: start: 20080429
  13. PRANDIN [Concomitant]
     Indication: DIABETES MELLITUS
     Dosage: 1 MG, TID
  14. LANTUS [Concomitant]
     Indication: DIABETES MELLITUS
     Dosage: 10 U
  15. SENNA [Concomitant]
     Indication: LAXATIVE SUPPORTIVE CARE
     Dosage: 1 DF, QD
     Dates: start: 20080521

REACTIONS (10)
  - ACUTE PRERENAL FAILURE [None]
  - ANOREXIA [None]
  - BLOOD CREATININE INCREASED [None]
  - DEHYDRATION [None]
  - DYSPEPSIA [None]
  - DYSPHAGIA [None]
  - IMPAIRED GASTRIC EMPTYING [None]
  - ODYNOPHAGIA [None]
  - RENAL FAILURE ACUTE [None]
  - WEIGHT DECREASED [None]
